FAERS Safety Report 7637633-5 (Version None)
Quarter: 2011Q3

REPORT INFORMATION
  Report Type: 
  Country: None (occurrence: None)
  Receive Date: 20110726
  Receipt Date: 20110719
  Transmission Date: 20111222
  Serious: Yes (Other)
  Sender: FDA-Public Use
  Company Number: CA-MERCK-1107USA02389

PATIENT
  Age: 62 Year
  Sex: Female
  Weight: 75 kg

DRUGS (1)
  1. SINGULAIR [Suspect]
     Route: 048

REACTIONS (10)
  - ASTHENIA [None]
  - CHEST PAIN [None]
  - FATIGUE [None]
  - MYOCARDIAL ISCHAEMIA [None]
  - RHINORRHOEA [None]
  - SINUSITIS [None]
  - COUGH [None]
  - INSOMNIA [None]
  - SUICIDAL IDEATION [None]
  - THROAT IRRITATION [None]
